FAERS Safety Report 8609290-2 (Version None)
Quarter: 2012Q3

REPORT INFORMATION
  Report Type: 
  Country: None (occurrence: None)
  Receive Date: 20120821
  Receipt Date: 20120814
  Transmission Date: 20120928
  Serious: Yes (Hospitalization, Other)
  Sender: FDA-Public Use
  Company Number: PHHY2012CN066630

PATIENT
  Age: 30 Year
  Sex: Male

DRUGS (1)
  1. SEBIVO [Suspect]
     Indication: HEPATITIS B
     Dosage: 600 MG, QD
     Route: 048
     Dates: end: 20120716

REACTIONS (10)
  - MYALGIA [None]
  - LACTIC ACIDOSIS [None]
  - OEDEMA PERIPHERAL [None]
  - POLYMYOSITIS [None]
  - HYPOREFLEXIA [None]
  - BLOOD CREATINE PHOSPHOKINASE INCREASED [None]
  - ABDOMINAL DISCOMFORT [None]
  - MUSCULAR DYSTROPHY [None]
  - MYOGLOBIN BLOOD INCREASED [None]
  - MUSCLE ATROPHY [None]
